FAERS Safety Report 14313928 (Version 2)
Quarter: 2017Q4

REPORT INFORMATION
  Report Type: Spontaneous
  Country: US (occurrence: US)
  Receive Date: 20171221
  Receipt Date: 20171221
  Transmission Date: 20180321
  Serious: Yes (Death, Hospitalization, Other)
  Sender: FDA-Public Use
  Company Number: US-GILEAD-2017-0311929

PATIENT
  Age: 69 Year
  Sex: Female

DRUGS (2)
  1. AMBRISENTAN [Suspect]
     Active Substance: AMBRISENTAN
     Indication: DYSPNOEA
     Dosage: UNK
     Route: 065
  2. OXYGEN. [Concomitant]
     Active Substance: OXYGEN

REACTIONS (7)
  - Dyspnoea [Unknown]
  - Off label use [Unknown]
  - Abdominal distension [Unknown]
  - Peripheral swelling [Unknown]
  - Pneumonia [Unknown]
  - Malaise [Unknown]
  - Death [Fatal]
